FAERS Safety Report 7766821-2 (Version None)
Quarter: 2011Q3

REPORT INFORMATION
  Report Type: 
  Country: None (occurrence: None)
  Receive Date: 20110922
  Receipt Date: 20101208
  Transmission Date: 20111222
  Serious: Yes (Hospitalization, Other)
  Sender: FDA-Public Use
  Company Number: US-ASTRAZENECA-2010SE58167

PATIENT
  Age: 16 Year
  Sex: Female

DRUGS (13)
  1. VYVANSE [Suspect]
     Indication: ATTENTION DEFICIT/HYPERACTIVITY DISORDER
     Dates: start: 20101101
  2. LEXAPRO [Concomitant]
  3. ZOLOFT [Concomitant]
  4. SEROQUEL [Suspect]
     Route: 048
  5. STRATTERA [Concomitant]
  6. ADDERALL 5 [Concomitant]
  7. SEROQUEL [Suspect]
     Indication: BIPOLAR DISORDER
     Route: 048
     Dates: start: 20090501
  8. SEROQUEL [Suspect]
     Indication: SCHIZOPHRENIA
     Route: 048
     Dates: start: 20090501
  9. SEROQUEL [Suspect]
     Route: 048
  10. SEROQUEL [Suspect]
     Route: 048
     Dates: end: 20101101
  11. IMIPRAMINE [Concomitant]
  12. SEROQUEL [Suspect]
     Route: 048
     Dates: end: 20101101
  13. NUVIGIL [Suspect]
     Indication: ATTENTION DEFICIT/HYPERACTIVITY DISORDER

REACTIONS (7)
  - DRUG DOSE OMISSION [None]
  - DYSPNOEA [None]
  - ABNORMAL BEHAVIOUR [None]
  - PARANOIA [None]
  - SOMNOLENCE [None]
  - SUICIDAL IDEATION [None]
  - INSOMNIA [None]
